FAERS Safety Report 14711748 (Version 4)
Quarter: 2018Q3

REPORT INFORMATION
  Report Type: Report from Study
  Country: US (occurrence: US)
  Receive Date: 20180403
  Receipt Date: 20180817
  Transmission Date: 20181010
  Serious: Yes (Hospitalization, Other)
  Sender: FDA-Public Use
  Company Number: US-TAKEDA-2018TUS007794

PATIENT
  Age: 33 Year
  Sex: Male
  Weight: 72 kg

DRUGS (4)
  1. EPIDUO [Concomitant]
     Active Substance: ADAPALENE\BENZOYL PEROXIDE
     Indication: ROSACEA
     Dosage: UNK
     Route: 061
     Dates: start: 1996
  2. AVAR [Concomitant]
     Active Substance: SULFACETAMIDE SODIUM\SULFUR
     Indication: ROSACEA
     Dosage: UNK
     Route: 061
     Dates: start: 20160915
  3. XARELTO [Suspect]
     Active Substance: RIVAROXABAN
     Indication: THROMBOSIS
     Dosage: UNK
     Route: 048
     Dates: start: 20160915
  4. BRIGATINIB [Suspect]
     Active Substance: BRIGATINIB
     Indication: NON-SMALL CELL LUNG CANCER
     Dosage: 180 MG, QD
     Route: 048
     Dates: start: 20170612

REACTIONS (1)
  - Gastric haemorrhage [Recovered/Resolved]

NARRATIVE: CASE EVENT DATE: 20180326
